FAERS Safety Report 23221310 (Version 1)
Quarter: 2023Q4

REPORT INFORMATION
  Report Type: Spontaneous
  Country: US (occurrence: US)
  Receive Date: 20231123
  Receipt Date: 20231123
  Transmission Date: 20240110
  Serious: Yes (Other)
  Sender: FDA-Public Use
  Company Number: US-STRIDES ARCOLAB LIMITED-2023SP009470

PATIENT
  Sex: Female

DRUGS (6)
  1. PROPAFENONE [Suspect]
     Active Substance: PROPAFENONE
     Indication: Atrial fibrillation
     Dosage: UNK (EXTENDED-RELEASE CAPSULE (RYTHMOL))
     Route: 065
  2. PROPAFENONE [Suspect]
     Active Substance: PROPAFENONE
     Dosage: 425 MILLIGRAM, EXTENDED-RELEASE CAPSULE
     Route: 065
     Dates: start: 202209
  3. PROPAFENONE [Suspect]
     Active Substance: PROPAFENONE
     Dosage: 425 MILLIGRAM
     Route: 065
  4. PRAVACHOL [Concomitant]
     Active Substance: PRAVASTATIN SODIUM
     Indication: Drug therapy
     Dosage: UNK
     Route: 065
     Dates: end: 202209
  5. PLAVIX [Concomitant]
     Active Substance: CLOPIDOGREL BISULFATE
     Indication: Product used for unknown indication
     Dosage: UNK
     Route: 065
  6. LOVASTATIN [Concomitant]
     Active Substance: LOVASTATIN
     Indication: Product used for unknown indication
     Dosage: UNK
     Route: 065
     Dates: start: 202209

REACTIONS (2)
  - Therapeutic product effect incomplete [Unknown]
  - Alopecia [Not Recovered/Not Resolved]

NARRATIVE: CASE EVENT DATE: 20220901
